FAERS Safety Report 15809978 (Version 1)
Quarter: 2019Q1

REPORT INFORMATION
  Report Type: Spontaneous
  Country: US (occurrence: US)
  Receive Date: 20190111
  Receipt Date: 20190111
  Transmission Date: 20190417
  Serious: No
  Sender: FDA-Public Use
  Company Number: US-ROCHE-2110752

PATIENT
  Age: 67 Year
  Sex: Female
  Weight: 87.17 kg

DRUGS (3)
  1. ACTEMRA [Suspect]
     Active Substance: TOCILIZUMAB
     Indication: RHEUMATOID ARTHRITIS
     Route: 058
     Dates: start: 20180316, end: 20180507
  2. LANTUS [Concomitant]
     Active Substance: INSULIN GLARGINE
     Indication: DIABETES MELLITUS
     Route: 058
  3. RITUXAN [Suspect]
     Active Substance: RITUXIMAB
     Indication: RHEUMATOID ARTHRITIS
     Route: 058
     Dates: start: 201802

REACTIONS (11)
  - Device breakage [Unknown]
  - Arthritis [Not Recovered/Not Resolved]
  - Product complaint [Unknown]
  - Needle issue [Unknown]
  - Pain [Unknown]
  - Gait disturbance [Unknown]
  - Blood glucose fluctuation [Not Recovered/Not Resolved]
  - Drug ineffective [Unknown]
  - Blood glucose increased [Not Recovered/Not Resolved]
  - Arthropathy [Unknown]
  - Device malfunction [Unknown]

NARRATIVE: CASE EVENT DATE: 201804
